FAERS Safety Report 4562295-3 (Version None)
Quarter: 2005Q1

REPORT INFORMATION
  Report Type: 
  Country: None (occurrence: None)
  Receive Date: 20050121
  Receipt Date: 20050110
  Transmission Date: 20050727
  Serious: Yes (Disabling, Other)
  Sender: FDA-Public Use
  Company Number: 200510148BCC

PATIENT
  Sex: Female

DRUGS (1)
  1. ALEVE [Suspect]

REACTIONS (4)
  - CEREBROVASCULAR ACCIDENT [None]
  - DEAFNESS UNILATERAL [None]
  - FALL [None]
  - VERTIGO [None]
